FAERS Safety Report 7770011-7 (Version None)
Quarter: 2011Q3

REPORT INFORMATION
  Report Type: 
  Country: None (occurrence: None)
  Receive Date: 20110922
  Receipt Date: 20100827
  Transmission Date: 20111222
  Serious: No
  Sender: FDA-Public Use
  Company Number: US-ASTRAZENECA-2007UW21481

PATIENT
  Age: 683 Month
  Sex: Female
  Weight: 82.6 kg

DRUGS (25)
  1. SEROQUEL [Suspect]
     Dosage: 100-300 MG
     Route: 048
     Dates: start: 20000101, end: 20030101
  2. RISPERDAL [Concomitant]
     Dates: start: 20030326
  3. SYNTHROID [Concomitant]
     Indication: HYPOTHYROIDISM
     Dosage: 0.05 HALF TABLET DAILY
     Dates: start: 20030206
  4. KLONOPIN [Concomitant]
     Indication: ANXIETY
     Dosage: 1 MG THREE TIMES A DAY AS NEEDED
     Dates: start: 20060104
  5. HALDOL [Concomitant]
  6. SEROQUEL [Suspect]
     Indication: INSOMNIA
     Dosage: 25 MG TO 300 MG
     Route: 048
     Dates: start: 19980701, end: 20070301
  7. SEROQUEL [Suspect]
     Dosage: 100-900 MG
     Route: 048
     Dates: start: 20030202
  8. PREMARIN [Concomitant]
     Dates: start: 20030206
  9. HYDROXYZINE [Concomitant]
     Dates: start: 20030326
  10. ZOLOFT [Concomitant]
  11. SEROQUEL [Suspect]
     Dosage: 100-900 MG
     Route: 048
     Dates: start: 20030202
  12. RISPERDAL [Concomitant]
     Indication: ANXIETY
     Dates: start: 20000101, end: 20020101
  13. TRAZODONE HYDROCHLORIDE [Concomitant]
     Dates: start: 20030206, end: 20060104
  14. PROZAC [Concomitant]
     Dosage: 20 MG TWO TABLETS DAILY
     Dates: start: 20030206
  15. SEROQUEL [Suspect]
     Dosage: 100-300 MG
     Route: 048
     Dates: start: 20000101, end: 20030101
  16. PRILOSEC [Concomitant]
     Indication: GASTROOESOPHAGEAL REFLUX DISEASE
     Dates: start: 20030101
  17. METFORMIN [Concomitant]
     Dosage: 500 MG TWO TABLETS IN THE MORNING
     Dates: start: 20060725
  18. PAXIL [Concomitant]
  19. SEROQUEL [Suspect]
     Indication: ANXIETY
     Dosage: 25 MG TO 300 MG
     Route: 048
     Dates: start: 19980701, end: 20070301
  20. SEROQUEL [Suspect]
     Indication: DEPRESSION
     Dosage: 25 MG TO 300 MG
     Route: 048
     Dates: start: 19980701, end: 20070301
  21. RISPERDAL [Concomitant]
     Indication: DEPRESSION
     Dates: start: 20000101, end: 20020101
  22. SEROQUEL [Suspect]
     Dosage: 100-300 MG
     Route: 048
     Dates: start: 20000101, end: 20030101
  23. RISPERDAL [Concomitant]
     Dates: start: 20030326
  24. WELLBUTRIN [Concomitant]
     Dates: start: 20030206
  25. SEROQUEL [Suspect]
     Dosage: 100-900 MG
     Route: 048
     Dates: start: 20030202

REACTIONS (10)
  - BLOOD CHOLESTEROL INCREASED [None]
  - HYPERLIPIDAEMIA [None]
  - BLOOD TRIGLYCERIDES INCREASED [None]
  - DIABETES MELLITUS INADEQUATE CONTROL [None]
  - PNEUMONIA [None]
  - DIABETES MELLITUS [None]
  - DIABETIC COMPLICATION [None]
  - HYPOGLYCAEMIA [None]
  - TYPE 2 DIABETES MELLITUS [None]
  - OBESITY [None]
